FAERS Safety Report 4592233-9 (Version None)
Quarter: 2005Q1

REPORT INFORMATION
  Report Type: 
  Country: None (occurrence: None)
  Receive Date: 20050228
  Receipt Date: 20041019
  Transmission Date: 20050727
  Serious: No
  Sender: FDA-Public Use
  Company Number: US-BRISTOL-MYERS SQUIBB COMPANY-12736567

PATIENT
  Age: 23 Year
  Sex: Female

DRUGS (3)
  1. ABILIFY [Suspect]
     Indication: MAJOR DEPRESSION
     Dosage: DOSE REDUCED TO 7.5 MG/DAY 29-MAY-2004; PT LEFT TREATMENT 30-MAY-04 AND NO LONGER TAKING DRUG
     Route: 048
     Dates: start: 20040525, end: 20040530
  2. SEROQUEL [Concomitant]
     Dosage: 25 MG DAILY AT HS; D/C 29-MAY-2004; RESUMED (DATE NOT PROVIDED) AND CONTINUING
  3. LEXAPRO [Concomitant]

REACTIONS (1)
  - EXTRAPYRAMIDAL DISORDER [None]
